FAERS Safety Report 8803167 (Version 2)
Quarter: 2015Q1

REPORT INFORMATION
  Report Type: Report from Study
  Country: US (occurrence: US)
  Receive Date: 20120924
  Receipt Date: 20150303
  Transmission Date: 20150721
  Serious: Yes (Death)
  Sender: FDA-Public Use
  Company Number: US-ROCHE-1096857

PATIENT
  Age: 68 Year
  Sex: Male
  Weight: 77.4 kg

DRUGS (26)
  1. CARBOPLATIN. [Concomitant]
     Active Substance: CARBOPLATIN
  2. DILAUDID [Concomitant]
     Active Substance: HYDROMORPHONE HYDROCHLORIDE
  3. FENTANYL. [Concomitant]
     Active Substance: FENTANYL
     Indication: PAIN
     Route: 065
  4. ARANESP [Concomitant]
     Active Substance: DARBEPOETIN ALFA
     Indication: ANAEMIA
     Route: 058
  5. COMPAZINE [Concomitant]
     Active Substance: PROCHLORPERAZINE MALEATE
  6. AVASTIN [Suspect]
     Active Substance: BEVACIZUMAB
     Indication: LUNG NEOPLASM MALIGNANT
     Route: 042
     Dates: start: 20060105
  7. AVASTIN [Suspect]
     Active Substance: BEVACIZUMAB
     Indication: BONE CANCER
  8. AVASTIN [Suspect]
     Active Substance: BEVACIZUMAB
     Indication: BONE CANCER
  9. NEULASTA [Concomitant]
     Active Substance: PEGFILGRASTIM
     Route: 058
  10. BENADRYL [Concomitant]
     Active Substance: DIPHENHYDRAMINE HYDROCHLORIDE
     Route: 065
  11. FLOMAX (UNITED STATES) [Concomitant]
  12. LEVAQUIN [Concomitant]
     Active Substance: LEVOFLOXACIN
     Indication: COUGH
  13. ZITHROMAX [Concomitant]
     Active Substance: AZITHROMYCIN DIHYDRATE
  14. OMNICEF (UNITED STATES) [Concomitant]
     Indication: COUGH
  15. HYCODAN (UNITED STATES) [Concomitant]
     Indication: COUGH
     Route: 048
  16. ALOXI [Concomitant]
     Active Substance: PALONOSETRON HYDROCHLORIDE
     Route: 065
  17. TYLENOL [Concomitant]
     Active Substance: ACETAMINOPHEN
     Indication: PAIN
  18. TAGAMET [Concomitant]
     Active Substance: CIMETIDINE
     Route: 065
  19. ALIMTA [Concomitant]
     Active Substance: PEMETREXED DISODIUM
  20. TAXOL [Concomitant]
     Active Substance: PACLITAXEL
  21. PREVACID [Concomitant]
     Active Substance: LANSOPRAZOLE
  22. TESSALON [Concomitant]
     Active Substance: BENZONATATE
     Indication: COUGH
  23. DECADRON [Concomitant]
     Active Substance: DEXAMETHASONE
     Route: 065
  24. TAXOTERE [Concomitant]
     Active Substance: DOCETAXEL
     Route: 065
  25. ZOMETA [Concomitant]
     Active Substance: ZOLEDRONIC ACID
     Indication: METASTASES TO BONE
     Route: 065
  26. SENNA [Concomitant]
     Active Substance: SENNA LEAF\SENNOSIDES\SENNOSIDES A AND B

REACTIONS (19)
  - Hypoaesthesia [Unknown]
  - Dyspnoea [Unknown]
  - Abdominal pain upper [Unknown]
  - Off label use [Unknown]
  - Vomiting [Unknown]
  - Fatigue [Unknown]
  - Peroneal nerve palsy [Unknown]
  - Arthralgia [Unknown]
  - Nausea [Unknown]
  - Night sweats [Unknown]
  - Hypersomnia [Unknown]
  - Skin lesion [Unknown]
  - Death [Fatal]
  - Diarrhoea [Unknown]
  - Back pain [Unknown]
  - Balance disorder [Unknown]
  - Cough [Unknown]
  - Epistaxis [Unknown]
  - Chest pain [Unknown]

NARRATIVE: CASE EVENT DATE: 20060708
